FAERS Safety Report 25499142 (Version 2)
Quarter: 2025Q3

REPORT INFORMATION
  Report Type: Spontaneous
  Country: GB (occurrence: GB)
  Receive Date: 20250701
  Receipt Date: 20250708
  Transmission Date: 20251020
  Serious: Yes (Other)
  Sender: MYLAN
  Company Number: GB-MYLANLABS-2025M1050100

PATIENT
  Sex: Female
  Weight: 97 kg

DRUGS (11)
  1. CLOZARIL [Suspect]
     Active Substance: CLOZAPINE
     Indication: Product used for unknown indication
     Dosage: UNK, BID (75 MG 1-0-0, 125 MG 0-0-1))
     Dates: start: 20161018
  2. CLOZARIL [Suspect]
     Active Substance: CLOZAPINE
     Dosage: UNK, BID (200 MG 0-0-1, 50 MG 1-0-0)
     Dates: start: 202501
  3. METFORMIN [Concomitant]
     Active Substance: METFORMIN HYDROCHLORIDE
     Indication: Diabetes mellitus
     Dosage: 500 MILLIGRAM, BID (500MG TWICE DAILY)
  4. DESOGESTREL [Concomitant]
     Active Substance: DESOGESTREL
     Dosage: 75 MICROGRAM, PM (0-0-1)
  5. FAMOTIDINE [Concomitant]
     Active Substance: FAMOTIDINE
     Dosage: 20 MILLIGRAM, BID (1-0-1)
  6. POLYETHYLENE GLYCOLS [Concomitant]
     Active Substance: POLYETHYLENE GLYCOLS
     Dosage: UNK, BID (SACHETS, 1-0-1)
  7. PIRENZEPINE [Concomitant]
     Active Substance: PIRENZEPINE
     Dosage: 50 MILLIGRAM, PM (0-0-1)
  8. PROPRANOLOL [Concomitant]
     Active Substance: PROPRANOLOL HYDROCHLORIDE
     Dosage: 10 MILLIGRAM, TID (2-1-2)
  9. SERTRALINE [Concomitant]
     Active Substance: SERTRALINE HYDROCHLORIDE
     Dosage: 50 MILLIGRAM, AM (1-0-0)
  10. TIRZEPATIDE [Concomitant]
     Active Substance: TIRZEPATIDE
     Dosage: 0.6 MILLILITER, QW (ONCE EVERY WEEK)
  11. JARDIANCE [Concomitant]
     Active Substance: EMPAGLIFLOZIN
     Dosage: 25 MILLIGRAM, AM ( 1-0-0)

REACTIONS (3)
  - Hallucination, auditory [Unknown]
  - Differential white blood cell count abnormal [Unknown]
  - Eosinophil count decreased [Unknown]
